FAERS Safety Report 5219619-3 (Version None)
Quarter: 2007Q1

REPORT INFORMATION
  Report Type: 
  Country: None (occurrence: None)
  Receive Date: 20070125
  Receipt Date: 20070112
  Transmission Date: 20070707
  Serious: Yes (Hospitalization)
  Sender: FDA-Public Use
  Company Number: SE-SHR-SE-2007-001492

PATIENT
  Age: 13 Year
  Sex: Female

DRUGS (6)
  1. SOTALOL HYDROCHLORIDE [Suspect]
     Dosage: 80 MG, 1X/DAY
     Route: 048
     Dates: start: 20061009, end: 20061012
  2. FRAGMIN                                 /SWE/ [Concomitant]
  3. IMPUGAN [Concomitant]
  4. ZINACEF [Concomitant]
  5. PROPOFOL [Concomitant]
  6. ADENOSIN [Concomitant]
     Dates: start: 20061009

REACTIONS (6)
  - DEPRESSED LEVEL OF CONSCIOUSNESS [None]
  - ELECTROCARDIOGRAM QT PROLONGED [None]
  - EMBOLISM [None]
  - MYOCARDIAL INFARCTION [None]
  - PULMONARY OEDEMA [None]
  - TORSADE DE POINTES [None]
